FAERS Safety Report 9383647 (Version 1)
Quarter: 2013Q3

REPORT INFORMATION
  Report Type: Spontaneous
  Country: FR (occurrence: FR)
  Receive Date: 20130704
  Receipt Date: 20130704
  Transmission Date: 20140515
  Serious: Yes (Other)
  Sender: FDA-Public Use
  Company Number: FR-PFIZER INC-2013190756

PATIENT
  Sex: 0

DRUGS (1)
  1. ZITHROMAX [Suspect]
     Indication: AUTISM
     Dosage: UNK

REACTIONS (3)
  - Off label use [Unknown]
  - Autism [Unknown]
  - Therapeutic response unexpected [Unknown]
